FAERS Safety Report 5203604-1 (Version None)
Quarter: 2007Q1

REPORT INFORMATION
  Report Type: 
  Country: None (occurrence: None)
  Receive Date: 20070110
  Receipt Date: 20070104
  Transmission Date: 20070707
  Serious: Yes (Death)
  Sender: FDA-Public Use
  Company Number: US-BRISTOL-MYERS SQUIBB COMPANY-13632351

PATIENT
  Age: 70 Year
  Sex: Female
  Weight: 68 kg

DRUGS (1)
  1. AVAPRO [Suspect]

REACTIONS (1)
  - COMA [None]
